FAERS Safety Report 14108598 (Version 2)
Quarter: 2017Q4

REPORT INFORMATION
  Report Type: Spontaneous
  Country: KR (occurrence: KR)
  Receive Date: 20171019
  Receipt Date: 20171116
  Transmission Date: 20180321
  Serious: Yes (Other)
  Sender: FDA-Public Use
  Company Number: KR-009507513-1710KOR007658

PATIENT
  Age: 36 Year
  Sex: Male
  Weight: 77.2 kg

DRUGS (14)
  1. TAZOPERAN [Concomitant]
     Indication: PERIODONTITIS
     Dosage: 4500 MG, TID (4 TIMES A DAY)
     Dates: start: 20170907, end: 20170909
  2. TAZOPERAN [Concomitant]
     Dosage: 2250 MG, TID (4 TIMES A DAY)
     Dates: start: 20170831, end: 20170906
  3. NOXAFIL [Suspect]
     Active Substance: POSACONAZOLE
     Dosage: 300 MG, TWICE A DAY
     Route: 048
     Dates: start: 20170814, end: 20170814
  4. MAXIPIME [Concomitant]
     Active Substance: CEFEPIME HYDROCHLORIDE
     Indication: ACUTE PROMYELOCYTIC LEUKAEMIA DIFFERENTIATION SYNDROME
     Dosage: 2000MG, THREE TIMES A DAY
     Route: 042
     Dates: start: 20170808, end: 20170812
  5. DEXAMETHASONE. [Suspect]
     Active Substance: DEXAMETHASONE
     Dosage: 5MG, ONCE DAILY, STRENGTH: 5 MG/ML5 MG, QD
     Route: 042
     Dates: start: 20170811, end: 20170812
  6. DEXAMETHASONE. [Suspect]
     Active Substance: DEXAMETHASONE
     Dosage: 10MG, TWICE A DAY, STRENGTH: 5 MG/ML
     Route: 042
     Dates: start: 20170808, end: 20170810
  7. VESANOID [Concomitant]
     Active Substance: TRETINOIN
     Indication: ACUTE MYELOID LEUKAEMIA
     Dosage: 40 MG, ONCE DAILY
     Route: 048
     Dates: start: 20170807
  8. FIBRINOGEN, HUMAN [Concomitant]
     Indication: BLOOD FIBRINOGEN DECREASED
     Dosage: 1000MG, ONCE DAILY
     Route: 042
     Dates: start: 20170808, end: 20170808
  9. DEXAMETHASONE. [Suspect]
     Active Substance: DEXAMETHASONE
     Indication: ACUTE PROMYELOCYTIC LEUKAEMIA DIFFERENTIATION SYNDROME
     Dosage: 5 MG, TWICE A DAY, STRENGTH: 5 MG/ML
     Route: 042
     Dates: start: 20170901, end: 20170904
  10. TAZOPERAN [Concomitant]
     Dosage: 4500 MG, THREE TIMES A DAY
     Route: 042
     Dates: start: 20170827, end: 20170830
  11. VIREAD [Concomitant]
     Active Substance: TENOFOVIR DISOPROXIL FUMARATE
     Indication: CHRONIC HEPATITIS B
     Dosage: 300 MG, ONCE DAILY
     Route: 048
     Dates: start: 20170808
  12. NOXAFIL [Suspect]
     Active Substance: POSACONAZOLE
     Indication: ANTIFUNGAL PROPHYLAXIS
     Dosage: 300 MG, ONCE A DAY
     Route: 048
     Dates: start: 20170815, end: 20170909
  13. DEXAMETHASONE. [Suspect]
     Active Substance: DEXAMETHASONE
     Dosage: 10 MG, TWICE A DAY, STRENGTH: 5 MG/ML
     Route: 042
     Dates: start: 20170828, end: 20170831
  14. IDARUBICIN HYDROCHLORIDE. [Concomitant]
     Active Substance: IDARUBICIN HYDROCHLORIDE
     Indication: ACUTE MYELOID LEUKAEMIA
     Dosage: 22.8 MG, EVERY OTHER DAY
     Route: 042
     Dates: start: 20170809, end: 20170813

REACTIONS (11)
  - Haematuria [Recovered/Resolved]
  - Hypertension [Recovered/Resolved]
  - Sinus bradycardia [Recovered/Resolved]
  - Oral herpes [Recovered/Resolved]
  - Melaena [Recovered/Resolved]
  - Hyperkalaemia [Recovered/Resolved]
  - Adrenal insufficiency [Recovering/Resolving]
  - Abdominal pain upper [Recovered/Resolved]
  - Pneumonia [Recovered/Resolved]
  - Alanine aminotransferase increased [Recovered/Resolved]
  - Asthenia [Recovered/Resolved]

NARRATIVE: CASE EVENT DATE: 20170814
